FAERS Safety Report 17957546 (Version 4)
Quarter: 2020Q3

REPORT INFORMATION
  Report Type: Spontaneous
  Country: US (occurrence: US)
  Receive Date: 20200629
  Receipt Date: 20200729
  Transmission Date: 20201103
  Serious: Yes (Hospitalization, Other)
  Sender: FDA-Public Use
  Company Number: US-PFIZER INC-2020245265

PATIENT
  Age: 49 Year
  Sex: Female
  Weight: 42.64 kg

DRUGS (2)
  1. LIOTHYRONINE SODIUM. [Suspect]
     Active Substance: LIOTHYRONINE SODIUM
     Indication: HYPOTHYROIDISM
     Dosage: 2.5 UG, 1X/DAY (5MCG HALF A TABLET BY MOUTH ONCE A DAY)
     Route: 048
     Dates: start: 2002
  2. CYTOMEL [Concomitant]
     Active Substance: LIOTHYRONINE SODIUM
     Dosage: UNK
     Dates: start: 20200616

REACTIONS (15)
  - Pulmonary embolism [Unknown]
  - Product design issue [Unknown]
  - Deep vein thrombosis [Unknown]
  - Insomnia [Unknown]
  - Herpes simplex [Unknown]
  - Neutropenia [Unknown]
  - Incorrect dose administered [Unknown]
  - Weight decreased [Unknown]
  - Small cell lung cancer [Recovering/Resolving]
  - Pain [Unknown]
  - Tachycardia [Unknown]
  - Osteonecrosis [Unknown]
  - Herpes simplex encephalitis [Unknown]
  - Scoliosis [Unknown]
  - Body height decreased [Unknown]

NARRATIVE: CASE EVENT DATE: 2015
